FAERS Safety Report 19601832 (Version 1)
Quarter: 2021Q3

REPORT INFORMATION
  Report Type: Spontaneous
  Country: ES (occurrence: ES)
  Receive Date: 20210723
  Receipt Date: 20210723
  Transmission Date: 20211014
  Serious: Yes (Hospitalization)
  Sender: FDA-Public Use
  Company Number: ES-ACCORD-232636

PATIENT
  Age: 86 Year
  Sex: Female

DRUGS (3)
  1. SPIRONOLACTONE. [Interacting]
     Active Substance: SPIRONOLACTONE
     Indication: CARDIAC FAILURE
     Dosage: (326A), 25MG/24H
     Route: 048
     Dates: start: 20160404
  2. HIGROTONA [Interacting]
     Active Substance: CHLORTHALIDONE
     Indication: CARDIAC FAILURE
     Dosage: 50MG/24H, 30 TABLETS
     Route: 048
     Dates: start: 20190312
  3. FUROSEMIDE. [Suspect]
     Active Substance: FUROSEMIDE
     Indication: CARDIAC FAILURE
     Dosage: (1615A), 40MG/24H
     Route: 048
     Dates: start: 20160404

REACTIONS (2)
  - Drug interaction [Unknown]
  - Hyponatraemia [Recovered/Resolved]

NARRATIVE: CASE EVENT DATE: 20200120
